FAERS Safety Report 10015788 (Version 1)
Quarter: 2014Q1

REPORT INFORMATION
  Report Type: Spontaneous
  Country: US (occurrence: US)
  Receive Date: 20140317
  Receipt Date: 20140317
  Transmission Date: 20141002
  Serious: Yes (Hospitalization)
  Sender: FDA-Public Use
  Company Number: US-GLAXOSMITHKLINE-A1063887A

PATIENT
  Age: 75 Year
  Sex: Female

DRUGS (3)
  1. ADVAIR [Suspect]
     Indication: CHRONIC OBSTRUCTIVE PULMONARY DISEASE
     Dosage: 1PUFF TWICE PER DAY
     Route: 055
  2. ACCUPRIL [Concomitant]
  3. CADUET [Concomitant]

REACTIONS (4)
  - Lung neoplasm malignant [Unknown]
  - Colectomy [Unknown]
  - Diarrhoea [Unknown]
  - Gastric disorder [Unknown]
